FAERS Safety Report 8066772-2 (Version None)
Quarter: 2012Q1

REPORT INFORMATION
  Report Type: 
  Country: None (occurrence: None)
  Receive Date: 20120124
  Receipt Date: 20120124
  Transmission Date: 20120608
  Serious: Yes (Other)
  Sender: FDA-Public Use
  Company Number: US-BAYER-2012-007297

PATIENT
  Age: 47 Year
  Sex: Female

DRUGS (1)
  1. MAGNEVIST [Suspect]
     Indication: NUCLEAR MAGNETIC RESONANCE IMAGING

REACTIONS (5)
  - ANAPHYLACTIC REACTION [None]
  - PRURITUS GENERALISED [None]
  - CHEST DISCOMFORT [None]
  - DIZZINESS [None]
  - SKIN TEST POSITIVE [None]
